FAERS Safety Report 16186197 (Version 2)
Quarter: 2019Q2

REPORT INFORMATION
  Report Type: Spontaneous
  Country: CO (occurrence: CO)
  Receive Date: 20190411
  Receipt Date: 20190416
  Transmission Date: 20190711
  Serious: Yes (Other)
  Sender: FDA-Public Use
  Company Number: CO-BAYER-2019-070737

PATIENT
  Age: 16 Year
  Sex: Female

DRUGS (4)
  1. AZITHROMYCIN ANHYDROUS. [Suspect]
     Active Substance: AZITHROMYCIN ANHYDROUS
     Indication: SUICIDE ATTEMPT
     Dosage: 2 DF, UNK
     Route: 048
  2. ATORVASTATIN [Suspect]
     Active Substance: ATORVASTATIN
     Indication: SUICIDE ATTEMPT
     Dosage: 2 DF, UNK
     Route: 048
  3. ASPIRINA 100 MG [Suspect]
     Active Substance: ASPIRIN
     Indication: SUICIDE ATTEMPT
     Dosage: 60 DF, UNK
     Route: 048
  4. ALBENDAZOLE. [Suspect]
     Active Substance: ALBENDAZOLE
     Indication: SUICIDE ATTEMPT
     Dosage: 1 DF, UNK
     Route: 048

REACTIONS (3)
  - Suicide attempt [Recovered/Resolved]
  - Vomiting [Recovered/Resolved]
  - Intentional overdose [Recovered/Resolved]

NARRATIVE: CASE EVENT DATE: 20190304
